FAERS Safety Report 14459669 (Version 3)
Quarter: 2018Q2

REPORT INFORMATION
  Report Type: Spontaneous
  Country: SE (occurrence: SE)
  Receive Date: 20180130
  Receipt Date: 20180426
  Transmission Date: 20180711
  Serious: Yes (Congenital Anomaly, Other)
  Sender: FDA-Public Use
  Company Number: SE-GLAXOSMITHKLINE-SE2018011475

PATIENT
  Sex: Female

DRUGS (4)
  1. LAMOTRIGINE. [Suspect]
     Active Substance: LAMOTRIGINE
     Indication: EPILEPSY
     Dosage: 300MG DAILY
     Route: 064
     Dates: start: 20171013
  2. KEPPRA [Suspect]
     Active Substance: LEVETIRACETAM
     Indication: EPILEPSY
     Dosage: 1500MG DAILY
     Route: 064
     Dates: start: 201708
  3. LAMOTRIGINE. [Suspect]
     Active Substance: LAMOTRIGINE
     Dosage: 250 MG
     Route: 064
  4. FOLACIN (FOLIC ACID) [Concomitant]
     Indication: PRODUCT USED FOR UNKNOWN INDICATION
     Dosage: UNK
     Route: 065

REACTIONS (4)
  - Foetal exposure during pregnancy [Unknown]
  - Dandy-Walker syndrome [Not Recovered/Not Resolved]
  - Foetal malformation [Unknown]
  - Umbilical hernia [Unknown]

NARRATIVE: CASE EVENT DATE: 20171102
